FAERS Safety Report 18026963 (Version 1)
Quarter: 2020Q3

REPORT INFORMATION
  Report Type: Spontaneous
  Country: US (occurrence: US)
  Receive Date: 20200715
  Receipt Date: 20200715
  Transmission Date: 20201103
  Serious: Yes (Life-Threatening, Disabling, Other)
  Sender: FDA-Public Use
  Company Number: US-PURDUE-USA-2020-0155454

PATIENT
  Sex: Male

DRUGS (4)
  1. OXYCODONE/ ACETAMINOPHEN TABLETS [Suspect]
     Active Substance: ACETAMINOPHEN\OXYCODONE HYDROCHLORIDE
     Indication: PRODUCT USED FOR UNKNOWN INDICATION
     Dosage: UNK
     Route: 048
  2. OXYCONTIN [Suspect]
     Active Substance: OXYCODONE HYDROCHLORIDE
     Indication: PAIN
     Dosage: 30 MG, 3?4 TIMES
     Route: 048
     Dates: start: 2010
  3. OXYCODONE HYDROCHLORIDE (SIMILAR TO NDA 22?272) [Suspect]
     Active Substance: OXYCODONE HYDROCHLORIDE
     Indication: PAIN
     Dosage: UNK
     Route: 065
     Dates: start: 2010
  4. OXYCODONE HCL CR TABLETS (SIMILAR TO NDA 22?272) [Suspect]
     Active Substance: OXYCODONE HYDROCHLORIDE
     Indication: PRODUCT USED FOR UNKNOWN INDICATION
     Dosage: UNK
     Route: 048

REACTIONS (17)
  - Asthma [Unknown]
  - Skeletal injury [Unknown]
  - Frustration tolerance decreased [Unknown]
  - General physical health deterioration [Unknown]
  - Lung disorder [Unknown]
  - Mental disability [Unknown]
  - Blood pressure increased [Unknown]
  - Antisocial behaviour [Unknown]
  - Spinal operation [Unknown]
  - Physical disability [Unknown]
  - Drug dependence [Unknown]
  - Myelopathy [Unknown]
  - Mobility decreased [Unknown]
  - Hip arthroplasty [Unknown]
  - Gait disturbance [Unknown]
  - Paramnesia [Unknown]
  - Aggression [Not Recovered/Not Resolved]

NARRATIVE: CASE EVENT DATE: 2010
